FAERS Safety Report 8018900-2 (Version None)
Quarter: 2012Q1

REPORT INFORMATION
  Report Type: 
  Country: None (occurrence: None)
  Receive Date: 20120103
  Receipt Date: 20111229
  Transmission Date: 20120608
  Serious: Yes (Hospitalization)
  Sender: FDA-Public Use
  Company Number: US-PFIZER INC-2011316547

PATIENT
  Sex: Male
  Weight: 105.5 kg

DRUGS (15)
  1. VERAPAMIL HCL [Suspect]
     Indication: HYPERTENSION
     Dosage: 240 MG, DAILY
     Route: 048
     Dates: start: 20111001, end: 20111201
  2. LISINOPRIL [Concomitant]
  3. SPIRONOLACTONE [Suspect]
     Indication: HYPERTENSION
     Dosage: 25 MG, DAILY
     Route: 048
     Dates: start: 20101022, end: 20111201
  4. CHLORTALIDONE [Concomitant]
  5. AMBIEN [Concomitant]
  6. OXYCODONE [Concomitant]
  7. OXYCONTIN [Concomitant]
  8. HYDROCHLOROTHIAZIDE [Concomitant]
  9. ATENOLOL [Suspect]
     Indication: HYPERTENSION
     Dosage: 100 MG, 1X/DAY
     Route: 048
     Dates: start: 20090601, end: 20100809
  10. ZOLPIDEM [Concomitant]
  11. ACETYLSALICYLIC ACID [Concomitant]
  12. BLINDED THERAPY [Suspect]
     Indication: DIABETIC NEUROPATHY
     Dosage: UNK MG, 1X/DAY
     Route: 048
     Dates: start: 20100601
  13. TRAMADOL [Concomitant]
  14. INSULIN DETEMIR [Concomitant]
  15. PROCET /USA/ [Concomitant]

REACTIONS (12)
  - NAUSEA [None]
  - PAIN [None]
  - BALANCE DISORDER [None]
  - MYALGIA [None]
  - HYPOVOLAEMIA [None]
  - HYPOPHAGIA [None]
  - VIRAL INFECTION [None]
  - BRADYCARDIA [None]
  - OROPHARYNGEAL PAIN [None]
  - HYPONATRAEMIA [None]
  - MALAISE [None]
  - COLD SWEAT [None]
